FAERS Safety Report 4762677-0 (Version None)
Quarter: 2005Q3

REPORT INFORMATION
  Report Type: 
  Country: None (occurrence: None)
  Receive Date: 20050906
  Receipt Date: 20050119
  Transmission Date: 20060218
  Serious: Yes (Hospitalization, Other)
  Sender: FDA-Public Use
  Company Number: ADE 05-PC014

PATIENT
  Sex: Female
  Weight: 108.8633 kg

DRUGS (2)
  1. NYSTOP [Suspect]
     Indication: FUNGAL INFECTION
     Dosage: BID/TID TOPICAL
     Route: 061
     Dates: start: 20050111, end: 20050114
  2. PRINIVIL [Concomitant]

REACTIONS (2)
  - HYPERSENSITIVITY [None]
  - RASH [None]
